FAERS Safety Report 21187492 (Version 1)
Quarter: 2022Q3

REPORT INFORMATION
  Report Type: Spontaneous
  Country: US (occurrence: None)
  Receive Date: 20220808
  Receipt Date: 20220808
  Transmission Date: 20221027
  Serious: Yes (Other)
  Sender: FDA-Public Use
  Company Number: US-VistaPharm, Inc.-VER202208-000684

PATIENT
  Age: 42 Year
  Sex: Female

DRUGS (6)
  1. METOCLOPRAMIDE [Suspect]
     Active Substance: METOCLOPRAMIDE
     Indication: Product used for unknown indication
     Dosage: 10 MG
     Route: 065
  2. METOCLOPRAMIDE [Suspect]
     Active Substance: METOCLOPRAMIDE
     Dosage: 10 MG
     Route: 042
  3. DULOXETINE [Suspect]
     Active Substance: DULOXETINE
     Indication: Product used for unknown indication
     Dosage: 60 MG
     Route: 065
  4. DULOXETINE [Suspect]
     Active Substance: DULOXETINE
     Dosage: UNKNOWN (DECREASED)
     Route: 065
  5. NORTRIPTYLINE [Suspect]
     Active Substance: NORTRIPTYLINE
     Indication: Product used for unknown indication
     Dosage: 150 MG
     Route: 065
  6. NORTRIPTYLINE [Suspect]
     Active Substance: NORTRIPTYLINE
     Dosage: UNKNOWN (DECREASED)
     Route: 065

REACTIONS (3)
  - Drug interaction [Unknown]
  - Serotonin syndrome [Recovered/Resolved]
  - Dystonia [Recovered/Resolved]
